FAERS Safety Report 8813698 (Version 1)
Quarter: 2012Q4

REPORT INFORMATION
  Report Type: 
  Country: CN (occurrence: CN)
  Receive Date: 20120928
  Receipt Date: 20120928
  Transmission Date: 20130627
  Serious: Yes (Other)
  Sender: FDA-Public Use
  Company Number: CN-AMGEN-CHNSP2012060843

PATIENT
  Sex: Male
  Weight: 65 kg

DRUGS (2)
  1. GRAN [Suspect]
     Indication: STEM CELL TRANSPLANT
     Route: 058
     Dates: start: 20081223, end: 20081223
  2. GRAN [Suspect]
     Indication: WHITE BLOOD CELL COUNT DECREASED

REACTIONS (4)
  - Nausea [Recovering/Resolving]
  - Vomiting [Recovering/Resolving]
  - Loss of consciousness [Recovering/Resolving]
  - Blood pressure decreased [Recovering/Resolving]
